FAERS Safety Report 4662243-1 (Version None)
Quarter: 2005Q2

REPORT INFORMATION
  Report Type: 
  Country: None (occurrence: None)
  Receive Date: 20050512
  Receipt Date: 20050421
  Transmission Date: 20051028
  Serious: Yes (Other)
  Sender: FDA-Public Use
  Company Number: USA050496223

PATIENT
  Age: 69 Year
  Sex: Female
  Weight: 64 kg

DRUGS (8)
  1. EVISTA [Suspect]
     Indication: OSTEOPOROSIS
     Dates: start: 19990101, end: 20050404
  2. FORTEO [Suspect]
     Indication: OSTEOPOROSIS
     Dosage: 20 UG/1 DAY
     Dates: start: 20050405
  3. HYDROCHLOROTHIAZIDE [Concomitant]
  4. CALCIUM GLUCONATE [Concomitant]
  5. VITAMIN D [Concomitant]
  6. MULTIVITAMINS NOS (MULTIVITAMINS NOS) [Concomitant]
  7. MIACALCIN [Concomitant]
  8. NEXIUM [Concomitant]

REACTIONS (8)
  - ARTHROPATHY [None]
  - DEPRESSION [None]
  - FLUID RETENTION [None]
  - MENISCUS LESION [None]
  - MUSCLE SPASMS [None]
  - PHARMACEUTICAL PRODUCT COMPLAINT [None]
  - POST PROCEDURAL COMPLICATION [None]
  - SPINAL FRACTURE [None]
